FAERS Safety Report 5366883-6 (Version None)
Quarter: 2007Q2

REPORT INFORMATION
  Report Type: 
  Country: None (occurrence: None)
  Receive Date: 20070622
  Receipt Date: 20061019
  Transmission Date: 20071010
  Serious: No
  Sender: FDA-Public Use
  Company Number: US-ASTRAZENECA-2006UW20202

PATIENT
  Age: 58 Year
  Sex: Female

DRUGS (2)
  1. RHINOCORT [Suspect]
     Indication: MULTIPLE ALLERGIES
     Route: 045
  2. POTASSIUM ACETATE [Concomitant]

REACTIONS (2)
  - EPISTAXIS [None]
  - INSOMNIA [None]
